FAERS Safety Report 9843415 (Version 1)
Quarter: 2013Q4

REPORT INFORMATION
  Report Type: Spontaneous
  Country: US (occurrence: None)
  Receive Date: 20131219
  Receipt Date: 20131219
  Transmission Date: 20140711
  Serious: Yes (Life-Threatening, Hospitalization)
  Sender: FDA-Public Use
  Company Number: 163-20785-13074529

PATIENT
  Age: 59 Year
  Sex: Female
  Weight: 108.41 kg

DRUGS (16)
  1. THALOMID (THALIDOMIDE) (200 MILLIGRAM, CAPSULES) [Suspect]
     Indication: PLASMA CELL MYELOMA
     Dosage: 1 IN 1 D
     Route: 048
     Dates: start: 20130701
  2. HUMALOG [Concomitant]
  3. XANAX [Concomitant]
  4. CALCIUM [Concomitant]
  5. SERTRALINE HCL [Concomitant]
  6. ATORVASTATIN CALCIUM [Concomitant]
  7. AMLODIPINE BESYLATE [Concomitant]
  8. VITAMIN D [Concomitant]
  9. LANTUS SOLOSTAR [Concomitant]
  10. OXYCODONE HCL [Concomitant]
  11. ROBAXIN [Concomitant]
  12. VALSARTAN-HYDROCHLOROTHIAZIDE [Concomitant]
  13. ACYCLOVIR [Concomitant]
  14. KLOR-CON [Concomitant]
  15. ZOFRAN [Concomitant]
  16. VITAMIN B12 [Concomitant]

REACTIONS (1)
  - Pneumonia [None]
